FAERS Safety Report 11626441 (Version 1)
Quarter: 2015Q4

REPORT INFORMATION
  Report Type: Spontaneous
  Country: US (occurrence: US)
  Receive Date: 20151013
  Receipt Date: 20151013
  Transmission Date: 20160304
  Serious: No
  Sender: FDA-Public Use
  Company Number: US-ROCHE-1542532

PATIENT
  Sex: Male

DRUGS (1)
  1. NAPROSYN [Suspect]
     Active Substance: NAPROXEN
     Indication: ARTHRITIS
     Route: 065

REACTIONS (2)
  - Dysgeusia [Unknown]
  - Wrong technique in product usage process [Unknown]
